FAERS Safety Report 7625883-3 (Version None)
Quarter: 2011Q3

REPORT INFORMATION
  Report Type: 
  Country: None (occurrence: None)
  Receive Date: 20110721
  Receipt Date: 20110712
  Transmission Date: 20111222
  Serious: Yes (Other)
  Sender: FDA-Public Use
  Company Number: IE-ASTRAZENECA-2011SE41490

PATIENT
  Sex: Female

DRUGS (1)
  1. CRESTOR [Suspect]
     Route: 048

REACTIONS (5)
  - SUICIDAL BEHAVIOUR [None]
  - DEPRESSION [None]
  - MYALGIA [None]
  - THERAPY CESSATION [None]
  - MUSCLE SPASMS [None]
